FAERS Safety Report 10247032 (Version 1)
Quarter: 2014Q2

REPORT INFORMATION
  Report Type: Spontaneous
  Country: CA (occurrence: CA)
  Receive Date: 20140619
  Receipt Date: 20140619
  Transmission Date: 20141212
  Serious: Yes (Other)
  Sender: FDA-Public Use
  Company Number: CA-MUNDIPHARMA DS AND PHARMACOVIGILANCE-CAN-2014-0005000

PATIENT
  Sex: Female

DRUGS (1)
  1. BUTRANS TRANSDERMAL PATCH - 5 MCG/HR [Suspect]
     Indication: PAIN
     Dosage: 5 MCG, Q1H
     Route: 062

REACTIONS (2)
  - Hallucination, visual [Unknown]
  - Delirium [Unknown]
